FAERS Safety Report 21939114 (Version 1)
Quarter: 2023Q1

REPORT INFORMATION
  Report Type: Report from Study
  Country: US (occurrence: US)
  Receive Date: 20230201
  Receipt Date: 20230201
  Transmission Date: 20230418
  Serious: Yes (Hospitalization)
  Sender: FDA-Public Use
  Company Number: US-EXELIXIS-CABO-22055197

PATIENT
  Sex: Male
  Weight: 76 kg

DRUGS (11)
  1. CABOMETYX [Suspect]
     Active Substance: CABOZANTINIB S-MALATE
     Indication: Renal cancer
     Dosage: 20 MG, QD
     Route: 048
  2. OXYGEN [Concomitant]
     Active Substance: OXYGEN
  3. LOVASTATIN [Concomitant]
     Active Substance: LOVASTATIN
  4. CLOPIDOGREL [Concomitant]
     Active Substance: CLOPIDOGREL BISULFATE
  5. ALLOPURINOL [Concomitant]
     Active Substance: ALLOPURINOL
  6. CARVEDILOL [Concomitant]
     Active Substance: CARVEDILOL
  7. VASCEPA [Concomitant]
     Active Substance: ICOSAPENT ETHYL
  8. FLUTICASONE PROPIONATE [Concomitant]
     Active Substance: FLUTICASONE PROPIONATE
  9. MONTELUKAST SODIUM [Concomitant]
     Active Substance: MONTELUKAST SODIUM
  10. EVEROLIMUS [Concomitant]
     Active Substance: EVEROLIMUS
  11. LENVIMA [Concomitant]
     Active Substance: LENVATINIB

REACTIONS (1)
  - Dyspnoea [Unknown]
